FAERS Safety Report 18783513 (Version 2)
Quarter: 2021Q1

REPORT INFORMATION
  Report Type: Spontaneous
  Country: US (occurrence: US)
  Receive Date: 20210125
  Receipt Date: 20210128
  Transmission Date: 20210419
  Serious: No
  Sender: FDA-Public Use
  Company Number: US-PFIZER INC-2021035144

PATIENT
  Age: 35 Year
  Sex: Female
  Weight: 60.33 kg

DRUGS (5)
  1. B?COMPLEX [VITAMIN B COMPLEX] [Concomitant]
     Indication: ENERGY INCREASED
     Dosage: 1 DF, AS NEEDED (ONE TABLET BY MOUTH, IT IS OVER THE COUNTER FROM (COMPANY NAME), TAKES AS NEEDED)
     Route: 048
     Dates: start: 2019
  2. FERROUS SULFATE. [Concomitant]
     Active Substance: FERROUS SULFATE
     Indication: MENSTRUAL DISORDER
     Dosage: 324 MG, 1X/DAY (324MG TABLET BY MOUTH ONCE DAILY)
     Route: 048
     Dates: start: 202001
  3. SERTRALINE HCL [Suspect]
     Active Substance: SERTRALINE HYDROCHLORIDE
     Dosage: 50 MG, DAILY (50MG; TAKE 1/2 TABLET (25MG) BY MOUTH FOR 7 DAYS, THEN ONE TABLET (50MG) BY MOUTH DAIL
     Route: 048
     Dates: start: 202011
  4. VYVANSE [Concomitant]
     Active Substance: LISDEXAMFETAMINE DIMESYLATE
     Indication: ATTENTION DEFICIT HYPERACTIVITY DISORDER
     Dosage: 30 MG, 1X/DAY (30MG ONCE DAILY IN THE MORNING)
  5. SERTRALINE HCL [Suspect]
     Active Substance: SERTRALINE HYDROCHLORIDE
     Indication: DEPRESSION
     Dosage: UNK (50MG; TAKE 1/2 TABLET (25MG) BY MOUTH FOR 7 DAYS, THEN ONE TABLET (50MG) BY MOUTH DAILY)
     Route: 048
     Dates: start: 2020

REACTIONS (6)
  - Dry mouth [Not Recovered/Not Resolved]
  - Off label use [Unknown]
  - Diarrhoea [Unknown]
  - Acne [Not Recovered/Not Resolved]
  - Abdominal discomfort [Not Recovered/Not Resolved]
  - Drug ineffective [Unknown]

NARRATIVE: CASE EVENT DATE: 20201028
